FAERS Safety Report 22611847 (Version 1)
Quarter: 2023Q2

REPORT INFORMATION
  Report Type: Report from Study
  Country: CA (occurrence: CA)
  Receive Date: 20230616
  Receipt Date: 20230616
  Transmission Date: 20230722
  Serious: Yes (Other)
  Sender: FDA-Public Use
  Company Number: CA-GILEAD-2022-0602082

PATIENT
  Age: 36 Year
  Sex: Female

DRUGS (4)
  1. SACITUZUMAB GOVITECAN-HZIY [Suspect]
     Active Substance: SACITUZUMAB GOVITECAN-HZIY
     Indication: Triple negative breast cancer
     Dosage: 461 MG CYCLE 1 DAY 1 + DAY 8
     Route: 042
     Dates: start: 20221007, end: 20221014
  2. SACITUZUMAB GOVITECAN-HZIY [Suspect]
     Active Substance: SACITUZUMAB GOVITECAN-HZIY
     Dosage: 461 MG CYCLE 2 DAY 1 + DAY 8
     Route: 042
     Dates: start: 20221102, end: 20221109
  3. SACITUZUMAB GOVITECAN-HZIY [Suspect]
     Active Substance: SACITUZUMAB GOVITECAN-HZIY
     Dosage: 461 MG AT EA. CYCLE
     Route: 042
     Dates: end: 20230607
  4. TAXOL [Concomitant]
     Active Substance: PACLITAXEL
     Dosage: 460 MG
     Dates: start: 20221007

REACTIONS (5)
  - Disease progression [Not Recovered/Not Resolved]
  - Weight increased [Not Recovered/Not Resolved]
  - Pyrexia [Unknown]
  - Nasopharyngitis [Unknown]
  - Inappropriate schedule of product administration [Unknown]

NARRATIVE: CASE EVENT DATE: 20221007
